FAERS Safety Report 7423801-4 (Version None)
Quarter: 2011Q2

REPORT INFORMATION
  Report Type: 
  Country: None (occurrence: None)
  Receive Date: 20110419
  Receipt Date: 20110413
  Transmission Date: 20111010
  Serious: Yes (Hospitalization)
  Sender: FDA-Public Use
  Company Number: US-AMGEN-USASP2011019689

PATIENT
  Age: 48 Year
  Sex: Female

DRUGS (1)
  1. ARANESP [Suspect]
     Indication: ANAEMIA OF MALIGNANT DISEASE
     Dosage: 200 A?G, UNK

REACTIONS (2)
  - PELVIC VENOUS THROMBOSIS [None]
  - ANAEMIA [None]
